FAERS Safety Report 13270137 (Version 1)
Quarter: 2017Q1

REPORT INFORMATION
  Report Type: Spontaneous
  Country: FR (occurrence: FR)
  Receive Date: 20170224
  Receipt Date: 20170224
  Transmission Date: 20170428
  Serious: Yes (Death, Hospitalization, Other)
  Sender: FDA-Public Use
  Company Number: FR-BRISTOL-MYERS SQUIBB COMPANY-BMS-2017-013979

PATIENT
  Age: 86 Year
  Sex: Male

DRUGS (2)
  1. ELIQUIS [Suspect]
     Active Substance: APIXABAN
     Indication: CEREBROVASCULAR ACCIDENT PROPHYLAXIS
     Dosage: 2.5 MG, BID
     Route: 048
     Dates: start: 201510, end: 20160101
  2. ASPEGIC [Suspect]
     Active Substance: ASPIRIN DL-LYSINE
     Indication: TRANSIENT ISCHAEMIC ATTACK
     Dosage: 100 MG, QD
     Route: 048
     Dates: end: 20160101

REACTIONS (5)
  - Haemoptysis [Fatal]
  - Interstitial lung disease [Unknown]
  - General physical health deterioration [Unknown]
  - Cardiac failure [Unknown]
  - Pulmonary alveolar haemorrhage [Unknown]

NARRATIVE: CASE EVENT DATE: 20160101
